FAERS Safety Report 6120383-4 (Version None)
Quarter: 2009Q1

REPORT INFORMATION
  Report Type: 
  Country: None (occurrence: None)
  Receive Date: 20090317
  Receipt Date: 20090303
  Transmission Date: 20090719
  Serious: Yes (Other)
  Sender: FDA-Public Use
  Company Number: US-RANBAXY-2009RR-22409

PATIENT
  Age: 85 Year
  Sex: Male

DRUGS (7)
  1. CIPROFLOXACIN [Suspect]
     Indication: URINARY TRACT INFECTION
     Dosage: UNK
     Dates: start: 20070226
  2. MIRTAZAPINE [Concomitant]
     Indication: DEPRESSION
     Dosage: UNK
     Dates: start: 20050901
  3. CARBIDOPA AND LEVODOPA [Concomitant]
  4. TAMSULOSIN HCL [Concomitant]
  5. FINASTERIDE [Concomitant]
  6. TRAVOPROST [Concomitant]
  7. METIPRANOLOL [Concomitant]

REACTIONS (2)
  - DRUG INTERACTION [None]
  - MANIA [None]
